FAERS Safety Report 14282382 (Version 2)
Quarter: 2018Q1

REPORT INFORMATION
  Report Type: Report from Study
  Country: US (occurrence: US)
  Receive Date: 20171213
  Receipt Date: 20180319
  Transmission Date: 20180508
  Serious: Yes (Hospitalization, Other)
  Sender: FDA-Public Use
  Company Number: US-ARIAD PHARMACEUTICALS, INC-2017US008942

PATIENT
  Age: 31 Year
  Sex: Male

DRUGS (3)
  1. PONATINIB [Suspect]
     Active Substance: PONATINIB
     Dosage: 30 MG, QD
     Route: 048
  2. PONATINIB [Suspect]
     Active Substance: PONATINIB
     Indication: ACUTE LYMPHOCYTIC LEUKAEMIA
     Dosage: 45 MG, QD
     Route: 048
     Dates: start: 201709
  3. PONATINIB [Suspect]
     Active Substance: PONATINIB
     Dosage: 30 MG, QD
     Route: 048

REACTIONS (16)
  - Acute lymphocytic leukaemia recurrent [Unknown]
  - Sleep disorder [Unknown]
  - Headache [Unknown]
  - Vomiting [Recovered/Resolved]
  - Hallucination, visual [Unknown]
  - Neutropenia [Unknown]
  - Immunodeficiency [Unknown]
  - Transaminases increased [Unknown]
  - Nausea [Recovered/Resolved]
  - Fatigue [Unknown]
  - Asthenia [Unknown]
  - Hypoaesthesia [Unknown]
  - Metastases to meninges [Unknown]
  - Sepsis [Unknown]
  - Pallor [Unknown]
  - Hypophagia [Recovered/Resolved]

NARRATIVE: CASE EVENT DATE: 20170913
